FAERS Safety Report 20029425 (Version 2)
Quarter: 2022Q1

REPORT INFORMATION
  Report Type: Spontaneous
  Country: US (occurrence: US)
  Receive Date: 20211103
  Receipt Date: 20220302
  Transmission Date: 20220423
  Serious: No
  Sender: FDA-Public Use
  Company Number: US-SA-SAC20211101001273

PATIENT
  Age: 30 Year
  Sex: Female

DRUGS (1)
  1. DUPIXENT [Suspect]
     Active Substance: DUPILUMAB
     Indication: Dermatitis atopic
     Dosage: 300 MG, QOW
     Route: 058
     Dates: start: 201912

REACTIONS (5)
  - Psoriasis [Unknown]
  - Gait disturbance [Unknown]
  - Exposure during pregnancy [Unknown]
  - Product dose omission issue [Unknown]
  - Dermatitis atopic [Unknown]
